FAERS Safety Report 18705021 (Version 1)
Quarter: 2021Q1

REPORT INFORMATION
  Report Type: Report from Study
  Country: HU (occurrence: HU)
  Receive Date: 20210105
  Receipt Date: 20210105
  Transmission Date: 20210419
  Serious: Yes (Other)
  Sender: FDA-Public Use
  Company Number: HU-ASTRAZENECA-2015SE40752

PATIENT
  Age: 59 Year
  Sex: Male

DRUGS (2)
  1. FORXIGA [Suspect]
     Active Substance: DAPAGLIFLOZIN
     Indication: DIABETES MELLITUS
     Route: 048
     Dates: start: 20141027
  2. FORXIGA [Suspect]
     Active Substance: DAPAGLIFLOZIN
     Indication: DIABETES MELLITUS
     Route: 048
     Dates: start: 201502

REACTIONS (1)
  - Acquired phimosis [Recovered/Resolved]

NARRATIVE: CASE EVENT DATE: 201503
